FAERS Safety Report 6729719-4 (Version None)
Quarter: 2010Q2

REPORT INFORMATION
  Report Type: 
  Country: None (occurrence: None)
  Receive Date: 20100518
  Receipt Date: 20100506
  Transmission Date: 20101027
  Serious: Yes (Other)
  Sender: FDA-Public Use
  Company Number: FI-JNJFOC-20100505289

PATIENT
  Age: 50 Year
  Sex: Female

DRUGS (5)
  1. REMICADE [Suspect]
     Indication: COLITIS ULCERATIVE
     Dosage: TOTAL OF 5 INFUSIONS
     Route: 042
  2. 5-ASA [Concomitant]
  3. SALAZOSULFAPYRIDINE [Concomitant]
  4. PENTASA [Concomitant]
  5. PARACETAMOL [Concomitant]

REACTIONS (2)
  - HEPATIC ENZYME INCREASED [None]
  - LIVER TRANSPLANT [None]
